FAERS Safety Report 24920776 (Version 1)
Quarter: 2025Q1

REPORT INFORMATION
  Report Type: Spontaneous
  Country: KR (occurrence: KR)
  Receive Date: 20250204
  Receipt Date: 20250204
  Transmission Date: 20250409
  Serious: Yes (Life-Threatening, Hospitalization, Other)
  Sender: SANOFI AVENTIS
  Company Number: KR-MLMSERVICE-20250124-PI365780-00217-3

PATIENT
  Age: 52 Year
  Sex: Female

DRUGS (3)
  1. METFORMIN HYDROCHLORIDE [Suspect]
     Active Substance: METFORMIN HYDROCHLORIDE
     Indication: Diabetes mellitus
     Dosage: 1000 MG, Q12H
  2. GLIMEPIRIDE [Suspect]
     Active Substance: GLIMEPIRIDE
     Indication: Diabetes mellitus
     Dosage: 2 MG, QD
  3. EMPAGLIFLOZIN [Suspect]
     Active Substance: EMPAGLIFLOZIN
     Indication: Diabetes mellitus
     Dosage: 25 MG, QD

REACTIONS (9)
  - Cerebral infarction [Recovering/Resolving]
  - Hemiparesis [Recovering/Resolving]
  - Dysarthria [Recovering/Resolving]
  - Condition aggravated [Recovering/Resolving]
  - Neurologic neglect syndrome [Recovering/Resolving]
  - Dyspnoea [Recovering/Resolving]
  - Carotid artery stenosis [Recovering/Resolving]
  - Diabetic ketoacidosis [Recovered/Resolved]
  - Metabolic acidosis [Recovered/Resolved]
